FAERS Safety Report 7321711-4 (Version None)
Quarter: 2011Q1

REPORT INFORMATION
  Report Type: 
  Country: None (occurrence: None)
  Receive Date: 20110228
  Receipt Date: 20100709
  Transmission Date: 20110831
  Serious: Yes (Other)
  Sender: FDA-Public Use
  Company Number: US-PFIZER INC-2010076717

PATIENT
  Sex: Female
  Weight: 58.957 kg

DRUGS (5)
  1. GEODON [Suspect]
     Indication: BIPOLAR DISORDER
     Dosage: 60 MG, 2X/DAY
     Route: 048
     Dates: end: 20100101
  2. LITHIUM CARBONATE [Concomitant]
     Dosage: 900 MG, UNK
  3. SEROQUEL [Concomitant]
     Dosage: UNK
  4. PROVIGIL [Concomitant]
     Dosage: 200 MG, UNK
  5. OXYCODONE [Concomitant]
     Dosage: UNK

REACTIONS (1)
  - DYSTONIA [None]
